FAERS Safety Report 4494653-X (Version None)
Quarter: 2004Q4

REPORT INFORMATION
  Report Type: 
  Country: None (occurrence: None)
  Receive Date: 20041103
  Receipt Date: 20041022
  Transmission Date: 20050328
  Serious: No
  Sender: FDA-Public Use
  Company Number: 2004UW22087

PATIENT
  Age: 61 Year
  Sex: Female
  Weight: 61.6892 kg

DRUGS (4)
  1. SEROQUEL [Suspect]
  2. ROSUVASTATIN [Concomitant]
  3. METFORMN [Concomitant]
  4. LISINOPRIL [Concomitant]

REACTIONS (11)
  - ACCIDENTAL EXPOSURE [None]
  - DEPRESSED LEVEL OF CONSCIOUSNESS [None]
  - DIZZINESS [None]
  - DRY MOUTH [None]
  - DYSPEPSIA [None]
  - HYPERTENSION [None]
  - INNER EAR DISORDER [None]
  - MEDICATION ERROR [None]
  - NAUSEA [None]
  - PARAESTHESIA [None]
  - PARAESTHESIA ORAL [None]
